FAERS Safety Report 14796509 (Version 2)
Quarter: 2018Q3

REPORT INFORMATION
  Report Type: Spontaneous
  Country: US (occurrence: US)
  Receive Date: 20180423
  Receipt Date: 20180723
  Transmission Date: 20181010
  Serious: No
  Sender: FDA-Public Use
  Company Number: US-AMGEN-USASP2018047475

PATIENT
  Age: 67 Year
  Sex: Male
  Weight: 136.5 kg

DRUGS (1)
  1. REPATHA [Suspect]
     Active Substance: EVOLOCUMAB
     Indication: BLOOD CHOLESTEROL INCREASED
     Dosage: 140 MG/ML, Q2WK
     Route: 065
     Dates: start: 20180321

REACTIONS (3)
  - Pain [Recovered/Resolved]
  - Paraesthesia [Recovered/Resolved]
  - Lip blister [Recovered/Resolved]

NARRATIVE: CASE EVENT DATE: 20180321
